FAERS Safety Report 7746493-3 (Version None)
Quarter: 2011Q3

REPORT INFORMATION
  Report Type: 
  Country: None (occurrence: None)
  Receive Date: 20110913
  Receipt Date: 20110908
  Transmission Date: 20111222
  Serious: Yes (Hospitalization)
  Sender: FDA-Public Use
  Company Number: JP-SANOFI-AVENTIS-2011SA058922

PATIENT
  Age: 60 Year
  Sex: Male

DRUGS (4)
  1. OXALIPLATIN [Suspect]
     Indication: COLON CANCER
     Route: 041
     Dates: start: 20110706, end: 20110817
  2. EFUDEX [Suspect]
     Route: 041
     Dates: start: 20110706, end: 20110817
  3. LEUCOVORIN CALCIUM [Suspect]
     Indication: COLON CANCER
     Route: 041
     Dates: start: 20110706, end: 20110817
  4. EFUDEX [Suspect]
     Indication: COLON CANCER
     Route: 040
     Dates: start: 20110706, end: 20110817

REACTIONS (1)
  - HYPERAMMONAEMIA [None]
